FAERS Safety Report 22531718 (Version 1)
Quarter: 2023Q2

REPORT INFORMATION
  Report Type: Spontaneous
  Country: US (occurrence: US)
  Receive Date: 20230607
  Receipt Date: 20230607
  Transmission Date: 20230721
  Serious: Yes (Other)
  Sender: FDA-Public Use
  Company Number: US-drreddys-LIT/USA/23/0166288

PATIENT
  Age: 46 Year
  Sex: Female

DRUGS (2)
  1. LUBIPROSTONE [Suspect]
     Active Substance: LUBIPROSTONE
     Indication: Distal intestinal obstruction syndrome
     Route: 048
  2. POLYETHYLENE GLYCOLS [Suspect]
     Active Substance: POLYETHYLENE GLYCOLS
     Indication: Distal intestinal obstruction syndrome

REACTIONS (3)
  - Distal intestinal obstruction syndrome [Recovering/Resolving]
  - Condition aggravated [Recovering/Resolving]
  - Drug ineffective for unapproved indication [Unknown]
